FAERS Safety Report 7623422-4 (Version None)
Quarter: 2011Q3

REPORT INFORMATION
  Report Type: 
  Country: None (occurrence: None)
  Receive Date: 20110720
  Receipt Date: 20110705
  Transmission Date: 20111222
  Serious: Yes (Hospitalization)
  Sender: FDA-Public Use
  Company Number: US-SANOFI-AVENTIS-2011SA044107

PATIENT
  Age: 65 Year
  Sex: Male
  Weight: 107 kg

DRUGS (15)
  1. ROSUVASTATIN [Concomitant]
     Route: 065
  2. CLOPIDOGREL - THIENOPYRIDINE [Concomitant]
     Route: 065
     Dates: start: 20110107
  3. DRONEDARONE HCL [Suspect]
     Indication: ATRIAL FIBRILLATION
     Route: 048
     Dates: start: 20101222, end: 20110425
  4. CARVEDILOL [Concomitant]
     Route: 065
     Dates: start: 20110425
  5. METFORMIN HCL [Concomitant]
     Route: 065
     Dates: start: 20110425, end: 20110502
  6. FENOFIBRATE [Concomitant]
     Route: 065
     Dates: start: 20110425
  7. ASPIRIN [Concomitant]
     Route: 065
     Dates: start: 20110107
  8. THIAZIDES [Concomitant]
     Indication: HYPERTENSION
     Route: 065
  9. WARFARIN SODIUM [Concomitant]
     Indication: THROMBOSIS PROPHYLAXIS
     Route: 065
  10. PRAVASTATIN [Concomitant]
     Route: 065
  11. OMEGA /ARG/ [Concomitant]
     Route: 065
     Dates: start: 20110425
  12. CARVEDILOL [Concomitant]
     Indication: HEART RATE
     Route: 065
  13. DIGOXIN [Concomitant]
     Indication: HEART RATE
     Route: 065
  14. SOTALOL HCL [Concomitant]
     Route: 065
     Dates: start: 20090617, end: 20110119
  15. LISINOPRIL [Concomitant]
     Route: 065

REACTIONS (2)
  - HYPOTENSION [None]
  - MENTAL STATUS CHANGES [None]
